FAERS Safety Report 8980067 (Version 1)
Quarter: 2012Q4

REPORT INFORMATION
  Report Type: 
  Country: US (occurrence: US)
  Receive Date: 20121221
  Receipt Date: 20121221
  Transmission Date: 20130627
  Serious: Yes (Death, Other)
  Sender: FDA-Public Use
  Company Number: CHPA2012US025581

PATIENT
  Age: 70 Year
  Sex: Female

DRUGS (1)
  1. KERI UNKNOWN [Suspect]
     Indication: DRY SKIN PROPHYLAXIS
     Dosage: Unk, Unk
     Route: 061

REACTIONS (4)
  - Lung neoplasm malignant [Fatal]
  - Lung disorder [Unknown]
  - Swelling face [Unknown]
  - Pharyngeal oedema [Unknown]
